FAERS Safety Report 21962519 (Version 1)
Quarter: 2023Q1

REPORT INFORMATION
  Report Type: Spontaneous
  Country: JP (occurrence: JP)
  Receive Date: 20230207
  Receipt Date: 20230207
  Transmission Date: 20230417
  Serious: Yes (Death)
  Sender: FDA-Public Use
  Company Number: JP-CHUGAI-2023003515

PATIENT
  Age: 74 Year
  Sex: Female

DRUGS (5)
  1. GAZYVA [Suspect]
     Active Substance: OBINUTUZUMAB
     Indication: Follicular lymphoma
     Dosage: UNK
     Route: 041
     Dates: start: 20210503, end: 20220712
  2. BENDAMUSTINE HYDROCHLORIDE [Concomitant]
     Active Substance: BENDAMUSTINE HYDROCHLORIDE
     Dosage: UNK
     Route: 041
     Dates: start: 202105
  3. ELASOMERAN [Concomitant]
     Active Substance: ELASOMERAN
     Indication: COVID-19 prophylaxis
     Dosage: UNK, SINGLE
     Route: 065
     Dates: start: 202106, end: 202106
  4. ELASOMERAN [Concomitant]
     Active Substance: ELASOMERAN
     Dosage: UNK, SINGLE
     Route: 065
     Dates: start: 202107, end: 202107
  5. ELASOMERAN [Concomitant]
     Active Substance: ELASOMERAN
     Dosage: UNK, SINGLE
     Route: 065
     Dates: start: 202202, end: 202202

REACTIONS (1)
  - COVID-19 [Fatal]

NARRATIVE: CASE EVENT DATE: 20220712
